FAERS Safety Report 10913175 (Version 1)
Quarter: 2015Q1

REPORT INFORMATION
  Report Type: Report from Study
  Country: US (occurrence: US)
  Receive Date: 20150313
  Receipt Date: 20150313
  Transmission Date: 20150721
  Serious: Yes (Other)
  Sender: FDA-Public Use
  Company Number: US-MERCK-1503USA005172

PATIENT
  Age: 80 Year

DRUGS (2)
  1. KYPROLIS [Suspect]
     Active Substance: CARFILZOMIB
     Indication: PLASMA CELL MYELOMA
     Dosage: 60 MG, FREQUENCY: 1,2,8,9,15,16 Q 28D
     Route: 042
     Dates: start: 20121217, end: 20140218
  2. DECADRON [Suspect]
     Active Substance: DEXAMETHASONE
     Indication: PLASMA CELL MYELOMA
     Dosage: 4 MG, FREQUENCY: DAY1,2,8,9,15,16,Q 28 D
     Route: 042
     Dates: start: 20121217, end: 20140218

REACTIONS (1)
  - Adverse event [Unknown]

NARRATIVE: CASE EVENT DATE: 20131023
